FAERS Safety Report 4954496-7 (Version None)
Quarter: 2006Q1

REPORT INFORMATION
  Report Type: 
  Country: None (occurrence: None)
  Receive Date: 20060322
  Receipt Date: 20060309
  Transmission Date: 20060701
  Serious: Yes (Life-Threatening, Hospitalization, Other)
  Sender: FDA-Public Use
  Company Number: 2006JP000611

PATIENT
  Age: 24 Year
  Sex: Female

DRUGS (55)
  1. PROGRAF [Suspect]
     Indication: LUNG TRANSPLANT
     Dosage: SEE IMAGE
     Dates: start: 20030613, end: 20030619
  2. PROGRAF [Suspect]
     Indication: LUNG TRANSPLANT
     Dosage: SEE IMAGE
     Dates: start: 20030620, end: 20030622
  3. PROGRAF [Suspect]
     Indication: LUNG TRANSPLANT
     Dosage: SEE IMAGE
     Dates: start: 20030623, end: 20030711
  4. PROGRAF [Suspect]
     Indication: LUNG TRANSPLANT
     Dosage: SEE IMAGE
     Dates: start: 20030712, end: 20030909
  5. PROGRAF [Suspect]
     Indication: LUNG TRANSPLANT
     Dosage: SEE IMAGE
     Dates: start: 20030910, end: 20031130
  6. PROGRAF [Suspect]
     Indication: LUNG TRANSPLANT
     Dosage: SEE IMAGE
     Dates: start: 20031201, end: 20040524
  7. PROGRAF [Suspect]
     Indication: LUNG TRANSPLANT
     Dosage: SEE IMAGE
     Dates: start: 20031219
  8. PROGRAF [Suspect]
     Indication: LUNG TRANSPLANT
     Dosage: SEE IMAGE
     Dates: start: 20040525
  9. IMURAN [Suspect]
     Indication: LUNG TRANSPLANT
     Dosage: 100 MG, ORAL
     Route: 048
     Dates: start: 20030613, end: 20031005
  10. SOLU-MEDROL [Suspect]
  11. FENTANEST (FENTANYL CITRATE) INJECTION [Suspect]
     Indication: LUNG TRANSPLANT
     Dosage: IV NOS
     Route: 042
     Dates: start: 20030613, end: 20030615
  12. FUNGIZONE (AMPHOTERICIN B) INHALATION [Suspect]
     Indication: LUNG TRANSPLANT
     Dosage: RESPIRATORY
     Route: 055
     Dates: start: 20030613, end: 20031116
  13. DIPRIVAN [Suspect]
     Indication: LUNG TRANSPLANT
     Dosage: IV NOS
     Route: 042
     Dates: start: 20030615, end: 20030630
  14. ANAPEINE (ROPIVACAINE) INJECTION [Suspect]
     Indication: LUNG TRANSPLANT
     Dosage: IV NOS
     Route: 042
     Dates: start: 20030616, end: 20030625
  15. METHYLPREDNISOLONE [Concomitant]
  16. PREDNISOLONE [Concomitant]
  17. CARBENIN (BETAMIPRON, PANIPENEM) INJECTION [Concomitant]
  18. TARGOCID [Concomitant]
  19. PACIL INJECTION [Concomitant]
  20. DIFLUCAN [Concomitant]
  21. ELASPOL (SIVELESTAT) INJECTION [Concomitant]
  22. INOVAN (DOPAMINE HYDROCHLORIDE) INJECTION [Concomitant]
  23. CORETEC INJECTION [Concomitant]
  24. TAGAMET (CIMETIDINE) INJECTION [Concomitant]
  25. NITROGLYCERIN (GLYCERYL TRINITRATE) INJECTION [Concomitant]
  26. DORMICUM (MIDAZOLAM) INJECTION [Concomitant]
  27. MUSCULAX (VECURONIUM BROMIDE (INJECTION) [Concomitant]
  28. PROSTANDIN (ALPROSTADIL) INJECTION [Concomitant]
  29. BISOLVON (BROMHEXINE HYDROCHLORIDE) [Concomitant]
  30. ALOTEC (ORCIPRENALINE SULFATE) INHALATION [Concomitant]
  31. VANCOMYCIN [Concomitant]
  32. FOY (GABEXATE MESILATE INJECTION [Concomitant]
  33. HABEKACIN (ARBEKACIN) INHALATION [Concomitant]
  34. DENOSINE (GANCICLOVIR) [Concomitant]
  35. MEROPEN (MEROPENEM) INJECTION [Concomitant]
  36. NEO-MINOPHAGEN C (CLYCYRRHIZIC ACID, AMMONIUM SALT) INJECTION [Concomitant]
  37. TAZOCIN (PIPERACILLIN SODIUM, TAZOBACTAM SODIUM) INJECTION [Concomitant]
  38. SUCRALFATE [Concomitant]
  39. CLONAZEPAM [Concomitant]
  40. SULFAMETHOXAZOLE + TRIMETHOPRIM [Concomitant]
  41. SUPRECUR (BUSERELIN ACETATE) AEROSOL [Concomitant]
  42. KIDMAN (AMINO ACIDS NOS) INJECTION [Concomitant]
  43. ZOLPIDEM TARTRATE [Concomitant]
  44. HIRNAMIN (LEVOMEPROMAZINE) [Concomitant]
  45. BISOPROLOL FUMARATE [Concomitant]
  46. LENDORM [Concomitant]
  47. ESTAZOLAM [Concomitant]
  48. MAGNESIUM OXIDE (MAGNESIUM OXIDE) [Concomitant]
  49. GASTER D [Concomitant]
  50. HALCION [Concomitant]
  51. ZOVIRAX [Concomitant]
  52. BIOFERMIN R (STREPTOCOCCUS FAECALIS) [Concomitant]
  53. ITRACONAZOLE [Concomitant]
  54. KLARACID (CLARITHROMYCIN) [Concomitant]
  55. ASPARA-CA (ASPARTATE CALCIUM) [Concomitant]

REACTIONS (12)
  - COMPLICATIONS OF TRANSPLANTED LUNG [None]
  - CONVULSION [None]
  - CYTOMEGALOVIRUS VIRAEMIA [None]
  - DEPRESSED LEVEL OF CONSCIOUSNESS [None]
  - HYPERGLYCAEMIA [None]
  - LYMPHANGIOLEIOMYOMATOSIS [None]
  - LYMPHATIC DUCT RUPTURE [None]
  - PLEURAL EFFUSION [None]
  - PNEUMONIA STAPHYLOCOCCAL [None]
  - PNEUMOTHORAX [None]
  - RENAL IMPAIRMENT [None]
  - WHITE BLOOD CELL COUNT DECREASED [None]
